FAERS Safety Report 8357827-3 (Version None)
Quarter: 2012Q2

REPORT INFORMATION
  Report Type: 
  Country: None (occurrence: None)
  Receive Date: 20120514
  Receipt Date: 20110615
  Transmission Date: 20120825
  Serious: Yes (Other)
  Sender: FDA-Public Use
  Company Number: US-ALEXION-A201100352

PATIENT
  Sex: Male

DRUGS (3)
  1. SOLIRIS [Suspect]
     Indication: PAROXYSMAL NOCTURNAL HAEMOGLOBINURIA
     Dosage: 600 MG QW
     Route: 042
     Dates: start: 20090916, end: 20091021
  2. ARANESP [Concomitant]
     Indication: HAEMOGLOBIN DECREASED
     Dosage: 100 MG PRN
     Route: 058
  3. SOLIRIS [Suspect]
     Dosage: 900 MG Q2W
     Route: 042
     Dates: start: 20091021

REACTIONS (5)
  - PROSTATOMEGALY [None]
  - VISUAL IMPAIRMENT [None]
  - RASH [None]
  - SQUAMOUS CELL CARCINOMA OF SKIN [None]
  - CATARACT [None]
